FAERS Safety Report 13677976 (Version 1)
Quarter: 2017Q2

REPORT INFORMATION
  Report Type: Spontaneous
  Country: US (occurrence: US)
  Receive Date: 20170621
  Receipt Date: 20170621
  Transmission Date: 20170830
  Serious: No
  Sender: FDA-Public Use
  Company Number: None

PATIENT
  Age: 64 Year
  Sex: Female

DRUGS (1)
  1. IBRANCE [Suspect]
     Active Substance: PALBOCICLIB
     Indication: BREAST CANCER
     Dosage: IBRANCE 100MG DAILY FOR 21 DAYS THEN 7 DAYS OFF ORAL
     Route: 048
     Dates: start: 20170506

REACTIONS (2)
  - Blood count abnormal [None]
  - Therapy cessation [None]
